FAERS Safety Report 9870390 (Version 1)
Quarter: 2014Q1

REPORT INFORMATION
  Report Type: Spontaneous
  Country: IT (occurrence: IT)
  Receive Date: 20140205
  Receipt Date: 20140205
  Transmission Date: 20141002
  Serious: Yes (Hospitalization, Other)
  Sender: FDA-Public Use
  Company Number: IT-009507513-1402ITA000947

PATIENT
  Age: 80 Year
  Sex: Female

DRUGS (2)
  1. TESAVEL [Suspect]
     Dosage: UNK
     Route: 048
  2. TRIATEC (RAMIPRIL) [Concomitant]
     Route: 048

REACTIONS (2)
  - Jaundice cholestatic [Recovered/Resolved with Sequelae]
  - Pancreatitis acute [Recovered/Resolved with Sequelae]
